FAERS Safety Report 10173999 (Version 1)
Quarter: 2014Q2

REPORT INFORMATION
  Report Type: Report from Study
  Country: AU (occurrence: None)
  Receive Date: 20140513
  Receipt Date: 20140513
  Transmission Date: 20141212
  Serious: Yes (Other)
  Sender: FDA-Public Use
  Company Number: 2014-19504

PATIENT
  Age: 75 Year
  Sex: Female

DRUGS (1)
  1. EYELEA [Suspect]
     Indication: AGE-RELATED MACULAR DEGENERATION
     Route: 031
     Dates: start: 20140321

REACTIONS (4)
  - Corneal disorder [None]
  - Dacryostenosis acquired [None]
  - Foreign body sensation in eyes [None]
  - Visual impairment [None]
